FAERS Safety Report 16225772 (Version 3)
Quarter: 2019Q2

REPORT INFORMATION
  Report Type: Spontaneous
  Country: US (occurrence: US)
  Receive Date: 20190422
  Receipt Date: 20190517
  Transmission Date: 20190711
  Serious: No
  Sender: FDA-Public Use
  Company Number: US-009507513-1904USA009150

PATIENT
  Age: 27 Year
  Sex: Female
  Weight: 110.2 kg

DRUGS (1)
  1. NEXPLANON [Suspect]
     Active Substance: ETONOGESTREL
     Indication: CONTRACEPTION
     Dosage: SINGLE IMPLANT
     Route: 059
     Dates: start: 20180914

REACTIONS (2)
  - No adverse event [Unknown]
  - Device kink [Not Recovered/Not Resolved]

NARRATIVE: CASE EVENT DATE: 20190412
